FAERS Safety Report 10056223 (Version 2)
Quarter: 2014Q2

REPORT INFORMATION
  Report Type: Spontaneous
  Country: IE (occurrence: IE)
  Receive Date: 20140403
  Receipt Date: 20140610
  Transmission Date: 20141212
  Serious: Yes (Hospitalization, Other)
  Sender: FDA-Public Use
  Company Number: IE-JNJFOC-20140401642

PATIENT
  Age: 75 Year
  Sex: Female

DRUGS (3)
  1. XARELTO [Suspect]
     Indication: PRODUCT USED FOR UNKNOWN INDICATION
     Route: 048
  2. XARELTO [Suspect]
     Indication: PRODUCT USED FOR UNKNOWN INDICATION
     Route: 048
  3. ASPIRIN [Suspect]
     Indication: PRODUCT USED FOR UNKNOWN INDICATION
     Route: 065

REACTIONS (6)
  - Renal failure acute [Recovered/Resolved]
  - Urinary tract infection [Unknown]
  - Uterine haemorrhage [Unknown]
  - Renal impairment [Unknown]
  - Contusion [Unknown]
  - Labelled drug-drug interaction medication error [Unknown]
